FAERS Safety Report 4869368-6 (Version None)
Quarter: 2005Q4

REPORT INFORMATION
  Report Type: 
  Country: None (occurrence: None)
  Receive Date: 20051230
  Receipt Date: 20051021
  Transmission Date: 20060501
  Serious: Yes (Hospitalization)
  Sender: FDA-Public Use
  Company Number: TW-NOVOPROD-249258

PATIENT
  Age: 17 Year
  Sex: Female
  Weight: 54 kg

DRUGS (7)
  1. BUMETANIDE [Concomitant]
     Dosage: 1 UNK, QD
  2. NOVORAPID PENFILL [Suspect]
     Indication: DIABETES MELLITUS INSULIN-DEPENDENT
     Dosage: 22+20+18
     Dates: end: 20051012
  3. NOVORAPID PENFILL [Suspect]
     Dosage: 23 IU, QD
     Dates: start: 20050926, end: 20051005
  4. NOVOLOG MIX 70/30 [Suspect]
     Indication: DIABETES MELLITUS INSULIN-DEPENDENT
     Dosage: 18+14+14
     Dates: start: 20051012, end: 20051121
  5. LANTUS [Suspect]
     Indication: DIABETES MELLITUS INSULIN-DEPENDENT
     Dosage: 26 IU, QD
     Dates: start: 20051005, end: 20051012
  6. LANTUS [Suspect]
     Dosage: 16 IU, QD
     Dates: start: 20050926, end: 20051005
  7. DICHLOTRIDE [Concomitant]
     Dosage: 50 MG, QD

REACTIONS (3)
  - DIABETES MELLITUS INADEQUATE CONTROL [None]
  - OEDEMA [None]
  - WEIGHT INCREASED [None]
